FAERS Safety Report 8742430 (Version 3)
Quarter: 2012Q4

REPORT INFORMATION
  Report Type: Report from Study
  Country: US (occurrence: US)
  Receive Date: 20120824
  Receipt Date: 20120918
  Transmission Date: 20130627
  Serious: Yes (Other)
  Sender: FDA-Public Use
  Company Number: US-NAPPMUNDI-USA-2012-0091624

PATIENT
  Age: 57 None
  Sex: Female
  Weight: 63.49 kg

DRUGS (1)
  1. OXYCONTIN (NDA 22-272) [Suspect]
     Indication: PAIN
     Dosage: 80 mg, bid
     Route: 048
     Dates: start: 2004

REACTIONS (4)
  - Neck surgery [Unknown]
  - Foot operation [Unknown]
  - Arthropathy [Not Recovered/Not Resolved]
  - Poor peripheral circulation [Not Recovered/Not Resolved]
